FAERS Safety Report 21159589 (Version 11)
Quarter: 2024Q3

REPORT INFORMATION
  Report Type: Report from Study
  Country: CO (occurrence: CO)
  Receive Date: 20220802
  Receipt Date: 20240802
  Transmission Date: 20241017
  Serious: Yes (Death, Other)
  Sender: AMGEN
  Company Number: CO-AMGEN-COLSL2022130917

PATIENT
  Age: 80 Year
  Sex: Male

DRUGS (2)
  1. VECTIBIX [Suspect]
     Active Substance: PANITUMUMAB
     Indication: Colorectal cancer metastatic
     Dosage: 100 MILLIGRAM, Q2WK (BIWEEKLY)
     Route: 042
     Dates: start: 20220624, end: 20231101
  2. LAGRIMAS ISOTONICAS [Concomitant]
     Dosage: 1 DROP, BID (IN EACH EYE)

REACTIONS (13)
  - Thrombosis [Fatal]
  - Rectal haemorrhage [Recovered/Resolved]
  - Skin reaction [Unknown]
  - Skin haemorrhage [Not Recovered/Not Resolved]
  - Pain in extremity [Not Recovered/Not Resolved]
  - Epistaxis [Recovered/Resolved]
  - Rash [Not Recovered/Not Resolved]
  - Skin fissures [Not Recovered/Not Resolved]
  - Dry skin [Not Recovered/Not Resolved]
  - Acne [Recovered/Resolved]
  - Influenza [Not Recovered/Not Resolved]
  - Blood creatinine abnormal [Not Recovered/Not Resolved]
  - Lumbar spinal stenosis [Not Recovered/Not Resolved]

NARRATIVE: CASE EVENT DATE: 20220101
